FAERS Safety Report 7641687-X (Version None)
Quarter: 2011Q3

REPORT INFORMATION
  Report Type: 
  Country: None (occurrence: None)
  Receive Date: 20110728
  Receipt Date: 20110721
  Transmission Date: 20111222
  Serious: Yes (Hospitalization)
  Sender: FDA-Public Use
  Company Number: NL-GLAXOSMITHKLINE-B0730547A

PATIENT
  Sex: Male

DRUGS (4)
  1. NIFEDIPINE [Concomitant]
     Indication: HYPERTENSION
     Dates: start: 20080620
  2. CHLORAMBUCIL [Suspect]
     Indication: CHRONIC LYMPHOCYTIC LEUKAEMIA
     Dosage: 60MG PER DAY
     Route: 065
     Dates: start: 20110314
  3. METFORMIN HCL [Concomitant]
     Indication: DIABETES MELLITUS
     Dates: start: 20090213
  4. ALLOPURINOL [Concomitant]
     Indication: CHRONIC LYMPHOCYTIC LEUKAEMIA
     Dates: start: 20110311, end: 20110509

REACTIONS (3)
  - THROMBOCYTOPENIA [None]
  - FEBRILE NEUTROPENIA [None]
  - ASPERGILLOSIS [None]
